FAERS Safety Report 16817125 (Version 1)
Quarter: 2019Q4

REPORT INFORMATION
  Report Type: Spontaneous
  Country: US (occurrence: US)
  Receive Date: 20190917
  Receipt Date: 20190917
  Transmission Date: 20200122
  Serious: Yes (Hospitalization)
  Sender: FDA-Public Use
  Company Number: None

PATIENT
  Age: 83 Year
  Sex: Male

DRUGS (10)
  1. INDERAL [Concomitant]
     Active Substance: PROPRANOLOL HYDROCHLORIDE
  2. LIPITOR [Concomitant]
     Active Substance: ATORVASTATIN CALCIUM
  3. PRADAXA [Concomitant]
     Active Substance: DABIGATRAN ETEXILATE MESYLATE
  4. VITAMIN D3 [Concomitant]
     Active Substance: CHOLECALCIFEROL
  5. FISH OIL [Concomitant]
     Active Substance: FISH OIL
  6. FLOMAX [Concomitant]
     Active Substance: TAMSULOSIN HYDROCHLORIDE
  7. GAS-X [Concomitant]
     Active Substance: DIMETHICONE
  8. ZYKADIA [Suspect]
     Active Substance: CERITINIB
     Indication: NEOPLASM MALIGNANT
     Route: 048
  9. DILTIAZEM. [Concomitant]
     Active Substance: DILTIAZEM
  10. PROBIOTIC [Concomitant]
     Active Substance: PROBIOTICS NOS

REACTIONS (1)
  - Adverse event [None]
